FAERS Safety Report 13577038 (Version 6)
Quarter: 2019Q2

REPORT INFORMATION
  Report Type: Spontaneous
  Country: US (occurrence: US)
  Receive Date: 20170524
  Receipt Date: 20190405
  Transmission Date: 20190711
  Serious: Yes (Hospitalization, Other)
  Sender: FDA-Public Use
  Company Number: US-TEVA-765837ACC

PATIENT
  Age: 56 Year
  Sex: Female

DRUGS (24)
  1. LOSARTAN POT [Concomitant]
     Active Substance: LOSARTAN POTASSIUM
  2. DICLOFENAC [Concomitant]
     Active Substance: DICLOFENAC
  3. DULOXETINE. [Concomitant]
     Active Substance: DULOXETINE
  4. POTASSIUM CHLORIDE MICRO [Concomitant]
     Route: 065
  5. METHOCARBAM [Concomitant]
     Active Substance: METHOCARBAMOL
  6. SIMVASTATIN. [Concomitant]
     Active Substance: SIMVASTATIN
  7. NAPROXEN. [Concomitant]
     Active Substance: NAPROXEN
  8. NEURONTIN [Concomitant]
     Active Substance: GABAPENTIN
  9. OMEPRAZOLE. [Concomitant]
     Active Substance: OMEPRAZOLE
  10. ALPRAZOLAM. [Concomitant]
     Active Substance: ALPRAZOLAM
  11. PERMETHRIN. [Concomitant]
     Active Substance: PERMETHRIN
  12. BACLOFEN. [Concomitant]
     Active Substance: BACLOFEN
  13. AMITRIPTYLIN [Concomitant]
     Active Substance: AMITRIPTYLINE
  14. ROBAXIN [Concomitant]
     Active Substance: METHOCARBAMOL
  15. SYNTHROID [Concomitant]
     Active Substance: LEVOTHYROXINE SODIUM
  16. COPAXONE [Suspect]
     Active Substance: GLATIRAMER ACETATE
     Indication: MULTIPLE SCLEROSIS
     Dosage: 20 MILLIGRAM DAILY; PFS
     Route: 058
     Dates: start: 20091113
  17. VITAMIN D3 [Concomitant]
     Active Substance: CHOLECALCIFEROL
  18. TRIAMTERENE AND HYDROCHLOROTHIAZID [Concomitant]
     Active Substance: HYDROCHLOROTHIAZIDE\TRIAMTERENE
  19. FOLIC ACID. [Concomitant]
     Active Substance: FOLIC ACID
  20. LEVOTHYROXIN [Concomitant]
     Active Substance: LEVOTHYROXINE
  21. GABAPENTIN. [Concomitant]
     Active Substance: GABAPENTIN
  22. LORATADINE. [Concomitant]
     Active Substance: LORATADINE
  23. TRIAMCINOLONE [Concomitant]
     Active Substance: TRIAMCINOLONE
  24. TRAMADOL. [Concomitant]
     Active Substance: TRAMADOL

REACTIONS (13)
  - Loss of consciousness [Not Recovered/Not Resolved]
  - Mass [Unknown]
  - Osteoarthritis [Not Recovered/Not Resolved]
  - Dehydration [Unknown]
  - Seizure [Not Recovered/Not Resolved]
  - Dizziness [Not Recovered/Not Resolved]
  - Nausea [Recovered/Resolved]
  - Goitre [Unknown]
  - Abdominal pain upper [Not Recovered/Not Resolved]
  - Vertigo [Not Recovered/Not Resolved]
  - Anxiety [Not Recovered/Not Resolved]
  - Thyroid hormones increased [Unknown]
  - Tremor [Recovered/Resolved]

NARRATIVE: CASE EVENT DATE: 2015
